FAERS Safety Report 5939838-8 (Version None)
Quarter: 2008Q4

REPORT INFORMATION
  Report Type: 
  Country: None (occurrence: None)
  Receive Date: 20081030
  Receipt Date: 20081030
  Transmission Date: 20090506
  Serious: Yes (Hospitalization)
  Sender: FDA-Public Use
  Company Number: None

PATIENT
  Sex: Female
  Weight: 52.1637 kg

DRUGS (1)
  1. SUNMARK MAGNESIUM CITRATE ORAL SOLN (LEMON) -MCKEASON [Suspect]
     Indication: COLONOSCOPY
     Dosage: 1 BOTTLE ONE TIME DOSE PO
     Route: 048
     Dates: start: 20080915

REACTIONS (7)
  - ACUTE RESPIRATORY DISTRESS SYNDROME [None]
  - APHASIA [None]
  - DISEASE RECURRENCE [None]
  - DRUG HYPERSENSITIVITY [None]
  - ONYCHALGIA [None]
  - PAIN IN EXTREMITY [None]
  - PERIPHERAL COLDNESS [None]
